FAERS Safety Report 4774990-1 (Version None)
Quarter: 2005Q3

REPORT INFORMATION
  Report Type: 
  Country: None (occurrence: None)
  Receive Date: 20050920
  Receipt Date: 20050912
  Transmission Date: 20060218
  Serious: Yes (Death, Other)
  Sender: FDA-Public Use
  Company Number: 2005127185

PATIENT
  Age: 80 Year
  Sex: Female

DRUGS (1)
  1. DALTEPARIN SODIUM [Suspect]
     Indication: THROMBOSIS PROPHYLAXIS
     Dosage: 10000 IU (5000 IU 2 IN 1 D) SUBCUTANEOUS
     Route: 058
     Dates: start: 20050903

REACTIONS (1)
  - INTRACRANIAL HAEMATOMA [None]
